FAERS Safety Report 5899746-8 (Version None)
Quarter: 2008Q3

REPORT INFORMATION
  Report Type: 
  Country: None (occurrence: None)
  Receive Date: 20080926
  Receipt Date: 20080916
  Transmission Date: 20090109
  Serious: Yes (Life-Threatening, Hospitalization, Disabling)
  Sender: FDA-Public Use
  Company Number: DE-AMGEN-US275873

PATIENT
  Sex: Female
  Weight: 100 kg

DRUGS (2)
  1. ENBREL [Suspect]
     Indication: RHEUMATOID ARTHRITIS
     Dosage: UNKNOWN
     Route: 058
  2. CORTICOSTEROID NOS [Concomitant]
     Route: 065

REACTIONS (2)
  - GUILLAIN-BARRE SYNDROME [None]
  - QUADRIPLEGIA [None]
